FAERS Safety Report 8962898 (Version 1)
Quarter: 2012Q4

REPORT INFORMATION
  Report Type: 
  Country: NL (occurrence: NL)
  Receive Date: 20121213
  Receipt Date: 20121213
  Transmission Date: 20130627
  Serious: Yes (Other)
  Sender: FDA-Public Use
  Company Number: NL-PFIZER INC-2012313040

PATIENT
  Sex: Female

DRUGS (1)
  1. ATORVASTATIN PFIZER [Suspect]
     Indication: FAMILIAL HYPERCHOLESTEROLEMIA
     Dosage: UNK

REACTIONS (6)
  - Hyperthyroidism [Unknown]
  - Headache [Unknown]
  - Constipation [Unknown]
  - Insomnia [Unknown]
  - Anxiety [Unknown]
  - Arthritis [Unknown]
